FAERS Safety Report 5036086-3 (Version None)
Quarter: 2006Q2

REPORT INFORMATION
  Report Type: 
  Country: None (occurrence: None)
  Receive Date: 20060627
  Receipt Date: 20060620
  Transmission Date: 20061013
  Serious: Yes (Congenital Anomaly)
  Sender: FDA-Public Use
  Company Number: IT-BOEHRINGER INGELHEIM PHARMACEUTICALS, INC.-2006-IT-00169IT

PATIENT

DRUGS (3)
  1. VIRAMUNE [Suspect]
     Indication: HIV TEST POSITIVE
  2. AZT [Concomitant]
     Indication: HIV TEST POSITIVE
  3. LAMIVUDINE [Concomitant]
     Indication: HIV TEST POSITIVE

REACTIONS (2)
  - DRUG EXPOSURE DURING PREGNANCY [None]
  - POLYDACTYLY [None]
